FAERS Safety Report 20049460 (Version 1)
Quarter: 2021Q4

REPORT INFORMATION
  Report Type: Spontaneous
  Country: CA (occurrence: CA)
  Receive Date: 20211109
  Receipt Date: 20211109
  Transmission Date: 20220303
  Serious: Yes (Death)
  Sender: FDA-Public Use
  Company Number: CA-PFIZER INC-2021771603

PATIENT
  Age: 64 Year
  Sex: Female

DRUGS (2)
  1. IBRANCE [Suspect]
     Active Substance: PALBOCICLIB
     Dosage: UNK
     Dates: start: 20200714
  2. LETROZOLE [Concomitant]
     Active Substance: LETROZOLE

REACTIONS (3)
  - Death [Fatal]
  - Neoplasm progression [Unknown]
  - Malaise [Unknown]
